FAERS Safety Report 8951016 (Version 1)
Quarter: 2012Q4

REPORT INFORMATION
  Report Type: Spontaneous
  Country: US (occurrence: None)
  Receive Date: 20121113
  Receipt Date: 20121113
  Transmission Date: 20130627
  Serious: Yes (Life-Threatening, Hospitalization)
  Sender: FDA-Public Use
  Company Number: 2012PROUSA02244

PATIENT
  Age: 77 Year
  Sex: Male
  Weight: 119.7 kg

DRUGS (11)
  1. PROVENGE (SIPULEUCEL-T) SUSPENSION [Suspect]
     Indication: PROSTATE CANCER METASTATIC
     Route: 042
     Dates: start: 20120920, end: 20120920
  2. PROVENGE (SIPULEUCEL-T) SUSPENSION [Suspect]
     Indication: PROSTATE CANCER METASTATIC
     Dates: start: 20121004, end: 20121004
  3. PROVENGE (SIPULEUCEL-T) SUSPENSION [Suspect]
     Indication: PROSTATE CANCER METASTATIC
     Dates: start: 20121018, end: 20121018
  4. VALSARTAN (VALSARTAN) [Concomitant]
  5. HYDROCHLOROTHIAZIDE (HYDROCHLOROTHIAZIDE) [Concomitant]
  6. ATORVASTATIN (ATORVASTATIN CALCIUM) [Concomitant]
  7. ALBUTEROL (SALBUTAMOL SULFATE) [Concomitant]
  8. FLUTICASONE (FLUTICASONE PROPIONATE) [Concomitant]
  9. LATANOPROST (LATANOPROST) [Concomitant]
  10. LEUPROLIDE ACETATE (LEUPRORELIN ACETATE) [Concomitant]
  11. SIMVASTATIN (SIMVASTATIN) [Suspect]

REACTIONS (3)
  - Pulmonary embolism [None]
  - Chills [None]
  - Body temperature increased [None]
